FAERS Safety Report 4705194-6 (Version None)
Quarter: 2005Q2

REPORT INFORMATION
  Report Type: 
  Country: None (occurrence: None)
  Receive Date: 20050628
  Receipt Date: 20050616
  Transmission Date: 20051028
  Serious: Yes (Hospitalization)
  Sender: FDA-Public Use
  Company Number: 2005089875

PATIENT
  Age: 74 Year
  Sex: Female

DRUGS (6)
  1. LIPITOR [Suspect]
     Indication: HYPERCHOLESTEROLAEMIA
     Dosage: 10 MG (1 IN 1 D), ORAL
     Route: 048
     Dates: end: 20050530
  2. ALDACTONE [Suspect]
     Indication: ILL-DEFINED DISORDER
     Dosage: 25 MG (1 IN 1 D), ORAL
     Route: 048
     Dates: end: 20050530
  3. DETANTOL R (BUNAZOSIN HYDROCHLORIDE) [Suspect]
     Indication: HYPERTENSION
     Dosage: 3 MG (1 IN 1 D), ORAL
     Route: 048
     Dates: end: 20050530
  4. ACTOS [Suspect]
     Indication: DIABETES MELLITUS
     Dosage: 15 MG (1 IN 1 D), ORAL
     Route: 048
     Dates: end: 20050530
  5. LORAMET (LORMETAZEPAM) [Concomitant]
  6. AMOXAPINE [Concomitant]

REACTIONS (4)
  - ANOREXIA [None]
  - FALL [None]
  - RHABDOMYOLYSIS [None]
  - URINARY TRACT INFECTION [None]
